FAERS Safety Report 19497998 (Version 2)
Quarter: 2021Q3

REPORT INFORMATION
  Report Type: Spontaneous
  Country: US (occurrence: US)
  Receive Date: 20210706
  Receipt Date: 20210804
  Transmission Date: 20211014
  Serious: No
  Sender: FDA-Public Use
  Company Number: US-PFIZER INC-2020351822

PATIENT
  Age: 45 Year
  Sex: Female
  Weight: 61.68 kg

DRUGS (1)
  1. GENOTROPIN MQ [Suspect]
     Active Substance: SOMATROPIN
     Indication: HYPOPITUITARISM
     Dosage: 0.2MG, ADMINISTERED TO STOMACH AREA ONCE AT NIGHT
     Route: 058

REACTIONS (1)
  - Intentional dose omission [Unknown]
